FAERS Safety Report 9827000 (Version 2)
Quarter: 2014Q3

REPORT INFORMATION
  Report Type: Spontaneous
  Country: US (occurrence: None)
  Receive Date: 20131112
  Receipt Date: 20140813
  Transmission Date: 20150326
  Serious: Yes (Other)
  Sender: FDA-Public Use
  Company Number: 2013SCPR007705

PATIENT

DRUGS (1)
  1. LAMOTRIGINE EXTENDED RELEASE [Suspect]
     Active Substance: LAMOTRIGINE
     Indication: CONVULSION
     Dosage: UNK, UNKNOWN, UNKNOWN

REACTIONS (1)
  - Convulsion [None]
